FAERS Safety Report 8462026-0 (Version None)
Quarter: 2012Q2

REPORT INFORMATION
  Report Type: 
  Country: None (occurrence: None)
  Receive Date: 20120625
  Receipt Date: 20120615
  Transmission Date: 20120825
  Serious: Yes (Hospitalization)
  Sender: FDA-Public Use
  Company Number: CA-JNJFOC-20120607954

PATIENT
  Sex: Female
  Weight: 73.3 kg

DRUGS (1)
  1. REMICADE [Suspect]
     Indication: RHEUMATOID ARTHRITIS
     Route: 042
     Dates: start: 20020909

REACTIONS (2)
  - OESOPHAGEAL DISORDER [None]
  - BLOOD GLUCOSE INCREASED [None]
